FAERS Safety Report 10257758 (Version 1)
Quarter: 2014Q2

REPORT INFORMATION
  Report Type: Spontaneous
  Country: US (occurrence: None)
  Receive Date: 20140623
  Receipt Date: 20140623
  Transmission Date: 20141212
  Serious: Yes (Hospitalization)
  Sender: FDA-Public Use
  Company Number: None

PATIENT
  Age: 62 Year
  Sex: Male
  Weight: 73.4 kg

DRUGS (3)
  1. NULOJIX [Suspect]
     Indication: RENAL TRANSPLANT
     Dosage: 775 MG, ONCE Q 4 WK, IV
     Route: 042
     Dates: start: 20140522
  2. CELLCEPT [Suspect]
     Indication: RENAL TRANSPLANT
     Route: 048
     Dates: start: 20140301
  3. BELATACEPT INFUSION [Concomitant]

REACTIONS (3)
  - White blood cell count decreased [None]
  - Hypomagnesaemia [None]
  - Polyomavirus-associated nephropathy [None]
